FAERS Safety Report 25023543 (Version 1)
Quarter: 2025Q1

REPORT INFORMATION
  Report Type: Report from Study
  Country: CA (occurrence: CA)
  Receive Date: 20250228
  Receipt Date: 20250228
  Transmission Date: 20250409
  Serious: Yes (Life-Threatening, Other)
  Sender: JOHNSON AND JOHNSON
  Company Number: CA-BAYER-2025A027459

PATIENT
  Age: 86 Year
  Sex: Female
  Weight: 72 kg

DRUGS (4)
  1. RIVAROXABAN [Suspect]
     Active Substance: RIVAROXABAN
     Indication: Thrombosis
     Dosage: 20 MG, QD
     Route: 065
  2. RENFLEXIS [Suspect]
     Active Substance: INFLIXIMAB-ABDA
     Indication: Rheumatoid arthritis
  3. RENFLEXIS [Suspect]
     Active Substance: INFLIXIMAB-ABDA
  4. RENFLEXIS [Suspect]
     Active Substance: INFLIXIMAB-ABDA
     Route: 065

REACTIONS (16)
  - Eyelid exfoliation [Not Recovered/Not Resolved]
  - Skin abrasion [Unknown]
  - Gait disturbance [Unknown]
  - Erythema of eyelid [Unknown]
  - Scab [Unknown]
  - Burning sensation [Unknown]
  - Product use issue [Unknown]
  - Thrombosis [Unknown]
  - Fall [Unknown]
  - Gingival bleeding [Unknown]
  - Wound secretion [Unknown]
  - Impaired healing [Unknown]
  - Eye irritation [Unknown]
  - Rheumatoid arthritis [Unknown]
  - Eye swelling [Unknown]
  - Ocular hyperaemia [Unknown]
